FAERS Safety Report 9131292 (Version 2)
Quarter: 2013Q2

REPORT INFORMATION
  Report Type: Report from Study
  Country: DE (occurrence: DE)
  Receive Date: 20130301
  Receipt Date: 20130416
  Transmission Date: 20140414
  Serious: Yes (Hospitalization)
  Sender: FDA-Public Use
  Company Number: DE-ASTELLAS-2013US002087

PATIENT
  Sex: Male

DRUGS (1)
  1. TACROLIMUS OINTMENT [Suspect]
     Indication: DERMATITIS ATOPIC
     Dosage: 0.03 %, ONCE A DAY TWICE WEEKLY
     Route: 061
     Dates: start: 20100125

REACTIONS (1)
  - Hospitalisation [Unknown]
